FAERS Safety Report 10955052 (Version 4)
Quarter: 2016Q3

REPORT INFORMATION
  Report Type: Spontaneous
  Country: JP (occurrence: JP)
  Receive Date: 20150325
  Receipt Date: 20160728
  Transmission Date: 20161109
  Serious: Yes (Hospitalization, Other)
  Sender: FDA-Public Use
  Company Number: JP-009507513-1503JPN000143

PATIENT
  Age: 60 Year
  Sex: Female
  Weight: 43 kg

DRUGS (12)
  1. PEGINTRON [Suspect]
     Active Substance: PEGINTERFERON ALFA-2B
     Indication: HEPATITIS C
     Dosage: 70 MICROGRAM, WEEKLY
     Route: 058
     Dates: start: 2010
  2. REBETOL [Suspect]
     Active Substance: RIBAVIRIN
     Indication: HEPATITIS C
     Dosage: 400 MG, QD
     Route: 048
     Dates: start: 2010
  3. MITIGLINIDE CALCIUM HYDRATE [Concomitant]
     Active Substance: MITIGLINIDE CALCIUM HYDRATE
     Indication: DIABETES MELLITUS
     Dosage: DAILY DOSAGE UNKNOWN, IMMEDIATELY BEFORE MEAL
     Route: 048
  4. RIBAVIRIN. [Suspect]
     Active Substance: RIBAVIRIN
     Indication: HEPATITIS C
     Dosage: 400 MG, QD
     Route: 048
     Dates: start: 201004
  5. RIBAVIRIN. [Suspect]
     Active Substance: RIBAVIRIN
     Indication: HEPATITIS C RNA POSITIVE
     Dosage: 400 UNK, UNK
     Route: 048
     Dates: start: 201012
  6. FERON [Suspect]
     Active Substance: INTERFERON BETA
     Indication: HEPATITIS C RNA POSITIVE
     Dosage: 6 (MILLION-BILLION UNIT), QD
     Route: 042
     Dates: start: 201012
  7. FERON [Suspect]
     Active Substance: INTERFERON BETA
     Indication: HEPATITIS C
     Dosage: 6 (MILLION-BILLION UNIT), QD
     Route: 042
     Dates: start: 201004
  8. TACROLIMUS. [Suspect]
     Active Substance: TACROLIMUS
     Indication: IMMUNOSUPPRESSANT DRUG THERAPY
     Dosage: DAILY DOSE UNKNOWN (FORMULATION: POR)
     Route: 048
     Dates: start: 2010, end: 201012
  9. RIBAVIRIN. [Suspect]
     Active Substance: RIBAVIRIN
     Indication: HEPATITIS C RNA POSITIVE
     Dosage: 400 MG, QD
     Route: 048
     Dates: start: 201012
  10. INSULIN ASPART [Concomitant]
     Active Substance: INSULIN ASPART
     Indication: DIABETES MELLITUS
     Dosage: 4 DF, TID (4 DOSE UNDER 1000UNITS)
     Route: 051
  11. PREDNISOLONE. [Suspect]
     Active Substance: PREDNISOLONE
     Indication: IMMUNOSUPPRESSION
     Dosage: UNK
     Dates: start: 2010
  12. CYCLOSPORINE. [Suspect]
     Active Substance: CYCLOSPORINE
     Indication: IMMUNOSUPPRESSANT DRUG THERAPY
     Dosage: DAILY  DOSE  UNNOWN
     Route: 048
     Dates: start: 201012

REACTIONS (5)
  - Renal impairment [Recovering/Resolving]
  - Procalcitonin increased [Recovering/Resolving]
  - Shock [Recovering/Resolving]
  - Liver disorder [Recovering/Resolving]
  - Post procedural infection [Recovering/Resolving]

NARRATIVE: CASE EVENT DATE: 2011
